FAERS Safety Report 6211627-9 (Version None)
Quarter: 2009Q2

REPORT INFORMATION
  Report Type: 
  Country: None (occurrence: None)
  Receive Date: 20090528
  Receipt Date: 20090514
  Transmission Date: 20091009
  Serious: Yes (Hospitalization)
  Sender: FDA-Public Use
  Company Number: 2009EU001991

PATIENT
  Age: 58 Year

DRUGS (3)
  1. PROGRAF [Suspect]
     Indication: LUNG TRANSPLANT
     Dosage: 0.5 MG, UID/QD, ORAL
     Route: 048
  2. PREDNISOLONE [Suspect]
     Indication: LUNG TRANSPLANT
     Dosage: 10 MG, UID/QD, ORAL
     Route: 048
  3. CELLCEPT [Suspect]
     Indication: LUNG TRANSPLANT
     Dosage: 2000 MG, UID/QD, ORAL
     Route: 048

REACTIONS (1)
  - STENT PLACEMENT [None]
